FAERS Safety Report 5375336-0 (Version None)
Quarter: 2007Q2

REPORT INFORMATION
  Report Type: 
  Country: None (occurrence: None)
  Receive Date: 20070629
  Receipt Date: 20070619
  Transmission Date: 20071010
  Serious: Yes (Hospitalization, Other)
  Sender: FDA-Public Use
  Company Number: PHBS2007DE10408

PATIENT

DRUGS (5)
  1. CYCLOSPORINE [Suspect]
     Route: 064
  2. CYCLOSPORINE [Suspect]
     Route: 064
  3. MESALAZINE [Concomitant]
     Route: 064
  4. STEROIDS NOS [Concomitant]
     Route: 064
  5. STEROIDS NOS [Concomitant]
     Route: 064

REACTIONS (7)
  - CAESAREAN SECTION [None]
  - CEREBRAL HAEMORRHAGE NEONATAL [None]
  - DRUG EXPOSURE DURING PREGNANCY [None]
  - FEMUR FRACTURE [None]
  - NEONATAL RESPIRATORY DISTRESS SYNDROME [None]
  - PLACENTAL INSUFFICIENCY [None]
  - PREMATURE BABY [None]
